FAERS Safety Report 21033466 (Version 1)
Quarter: 2022Q3

REPORT INFORMATION
  Report Type: Report from Study
  Country: CN (occurrence: None)
  Receive Date: 20220701
  Receipt Date: 20220701
  Transmission Date: 20221027
  Serious: Yes (Hospitalization)
  Sender: FDA-Public Use
  Company Number: CN-ROCHE-2284625

PATIENT
  Age: 49 Year
  Sex: Female
  Weight: 58 kg

DRUGS (9)
  1. TOCILIZUMAB [Suspect]
     Active Substance: TOCILIZUMAB
     Indication: Rheumatoid arthritis
     Dosage: ON 27/FEB/2019, PATIENT RECEVIED MOST RECENT DOSE 162 MG OF BLINDED TOCILIZUMAB PRIOR TO AE (ADVERSE
     Route: 058
     Dates: start: 20181120
  2. PLACEBO [Suspect]
     Active Substance: UNSPECIFIED INGREDIENT
     Indication: Rheumatoid arthritis
     Dosage: ON 02/MAR/2019, PATIENT RECEVIED MOST RECENT DOSE OF BLINDED TOCILIZUMAB PRIOR TO AE (ADVERSE EVENT)
     Route: 048
     Dates: start: 20181124
  3. MOBIC [Concomitant]
     Active Substance: MELOXICAM
     Indication: Rheumatoid arthritis
     Route: 048
     Dates: start: 2015
  4. MEDROL [Concomitant]
     Active Substance: METHYLPREDNISOLONE
     Indication: Rheumatoid arthritis
     Route: 048
     Dates: start: 20180716
  5. FOLIC ACID [Concomitant]
     Active Substance: FOLIC ACID
     Dates: start: 2016
  6. LANSOPRAZOLE [Concomitant]
     Active Substance: LANSOPRAZOLE
     Indication: Gastritis
  7. HYDROTALCITE [Concomitant]
     Active Substance: HYDROTALCITE
     Indication: Gastritis
  8. HYDROXYCHLOROQUINE [Concomitant]
     Active Substance: HYDROXYCHLOROQUINE
     Indication: Rheumatoid arthritis
     Dates: start: 20190411
  9. SULFASALAZINE [Concomitant]
     Active Substance: SULFASALAZINE
     Indication: Rheumatoid arthritis
     Dates: start: 20180716

REACTIONS (1)
  - Sudden hearing loss [Recovered/Resolved with Sequelae]

NARRATIVE: CASE EVENT DATE: 20190304
